FAERS Safety Report 5393268-9 (Version None)
Quarter: 2007Q3

REPORT INFORMATION
  Report Type: 
  Country: None (occurrence: None)
  Receive Date: 20070723
  Receipt Date: 20070713
  Transmission Date: 20080115
  Serious: Yes (Hospitalization, Other)
  Sender: FDA-Public Use
  Company Number: PHMT2007CA01574

PATIENT
  Age: 1 Year
  Sex: Male

DRUGS (1)
  1. TEGRETOL [Suspect]
     Indication: EPILEPSY
     Dosage: UNK, UNK
     Route: 048
     Dates: start: 20070705, end: 20070709

REACTIONS (3)
  - HEPATOTOXICITY [None]
  - STATUS EPILEPTICUS [None]
  - VOMITING [None]
